FAERS Safety Report 6547255-5 (Version None)
Quarter: 2010Q1

REPORT INFORMATION
  Report Type: 
  Country: None (occurrence: None)
  Receive Date: 20100122
  Receipt Date: 20090504
  Transmission Date: 20100710
  Serious: No
  Sender: FDA-Public Use
  Company Number: US-BAUSCH-2009BL002100

PATIENT
  Age: 64 Year
  Sex: Female
  Weight: 58 kg

DRUGS (4)
  1. ZYLET [Suspect]
     Indication: EYE INFECTION
     Route: 047
     Dates: start: 20090430, end: 20090501
  2. ZYLET [Suspect]
     Indication: HORDEOLUM
     Route: 047
     Dates: start: 20090430, end: 20090501
  3. SYSTANE [Concomitant]
     Indication: DRY EYE
     Route: 047
  4. RAMIPRIL [Concomitant]
     Indication: HYPERTENSION
     Route: 048

REACTIONS (8)
  - CHEST PAIN [None]
  - EYE IRRITATION [None]
  - EYE PRURITUS [None]
  - EYELID MARGIN CRUSTING [None]
  - GLOSSODYNIA [None]
  - PRODUCT TASTE ABNORMAL [None]
  - RHINORRHOEA [None]
  - THROAT IRRITATION [None]
